FAERS Safety Report 11631278 (Version 5)
Quarter: 2016Q4

REPORT INFORMATION
  Report Type: Spontaneous
  Country: US (occurrence: US)
  Receive Date: 20151014
  Receipt Date: 20161219
  Transmission Date: 20170206
  Serious: No
  Sender: FDA-Public Use
  Company Number: US-009507513-1510USA004886

PATIENT
  Sex: Female
  Weight: 50.34 kg

DRUGS (1)
  1. IMPLANON [Suspect]
     Active Substance: ETONOGESTREL
     Indication: CONTRACEPTION
     Dosage: 1 DF, UNKNOWN
     Route: 059
     Dates: start: 20110202, end: 20160329

REACTIONS (10)
  - Vaginal haemorrhage [Unknown]
  - Device difficult to use [Recovered/Resolved]
  - Complication of device removal [Recovered/Resolved]
  - Complication associated with device [Recovered/Resolved]
  - Dysmenorrhoea [Unknown]
  - Nausea [Unknown]
  - Incorrect drug administration duration [Recovered/Resolved]
  - Lipoma [Recovered/Resolved]
  - Implant site scar [Not Recovered/Not Resolved]
  - Menstrual disorder [Unknown]

NARRATIVE: CASE EVENT DATE: 2013
